FAERS Safety Report 5343237-X (Version None)
Quarter: 2007Q2

REPORT INFORMATION
  Report Type: 
  Country: None (occurrence: None)
  Receive Date: 20070416
  Receipt Date: 20070207
  Transmission Date: 20071010
  Serious: No
  Sender: FDA-Public Use
  Company Number: 2007SP000430

PATIENT
  Sex: Female

DRUGS (5)
  1. LUNESTA [Suspect]
     Indication: INSOMNIA
     Dosage: 3 MG;PRN;ORAL
     Route: 048
     Dates: start: 20060101
  2. EFFEXOR [Concomitant]
  3. MULTIVITAMIN [Concomitant]
  4. DICYCLOMINE [Concomitant]
  5. AMBIEN [Concomitant]

REACTIONS (1)
  - DYSGEUSIA [None]
